FAERS Safety Report 5661772-1 (Version None)
Quarter: 2008Q1

REPORT INFORMATION
  Report Type: 
  Country: None (occurrence: None)
  Receive Date: 20080306
  Receipt Date: 20080114
  Transmission Date: 20080703
  Serious: Yes (Death, Hospitalization)
  Sender: FDA-Public Use
  Company Number: STI-2008-00805

PATIENT
  Age: 3 Month
  Sex: Female

DRUGS (1)
  1. CLOBETASOL PROPIONATE [Suspect]
     Indication: DERMATITIS DIAPER
     Dosage: 25 G, 5-6 TIMES A DAY TOPICAL OVER LAST 2 MONTHS
     Route: 061

REACTIONS (21)
  - ADRENAL SUPPRESSION [None]
  - CENTRAL OBESITY [None]
  - COUGH [None]
  - CUSHING'S SYNDROME [None]
  - CUSHINGOID [None]
  - CYTOMEGALOVIRUS INFECTION [None]
  - DYSPNOEA [None]
  - FAT TISSUE INCREASED [None]
  - HEPATIC STEATOSIS [None]
  - HEPATOMEGALY [None]
  - HYPERLIPIDAEMIA [None]
  - HYPERTRICHOSIS [None]
  - IMPAIRED FASTING GLUCOSE [None]
  - LUNG INFILTRATION [None]
  - LYMPHOHISTIOCYTOSIS [None]
  - OEDEMA PERIPHERAL [None]
  - ORAL CANDIDIASIS [None]
  - PNEUMONIA BACTERIAL [None]
  - RESTLESSNESS [None]
  - SPLENOMEGALY [None]
  - TELANGIECTASIA [None]
